FAERS Safety Report 6141688-7 (Version None)
Quarter: 2009Q1

REPORT INFORMATION
  Report Type: 
  Country: None (occurrence: None)
  Receive Date: 20090331
  Receipt Date: 20090331
  Transmission Date: 20090719
  Serious: Yes (Other)
  Sender: FDA-Public Use
  Company Number: None

PATIENT
  Age: 40 Year
  Sex: Female
  Weight: 79.3795 kg

DRUGS (1)
  1. CIPROFLOXACIN HCL [Suspect]
     Indication: SINUSITIS BACTERIAL
     Dosage: 500MG 1 TBL BY MOUTH 2X PO
     Route: 048
     Dates: start: 20090312, end: 20090314

REACTIONS (6)
  - BACK PAIN [None]
  - FATIGUE [None]
  - OEDEMA PERIPHERAL [None]
  - PAIN IN EXTREMITY [None]
  - TENDON PAIN [None]
  - TENDONITIS [None]
